FAERS Safety Report 9547369 (Version 1)
Quarter: 2013Q2

REPORT INFORMATION
  Report Type: Spontaneous
  Country: US (occurrence: None)
  Receive Date: 20130606
  Receipt Date: 20130606
  Transmission Date: 20140414
  Serious: No
  Sender: FDA-Public Use
  Company Number: 2013PROUSA02602

PATIENT
  Age: 86 None
  Sex: Male
  Weight: 90.7 kg

DRUGS (3)
  1. PROVENGE (SIPULEUCEL-T) SUSPENSION, 250ML [Suspect]
     Indication: PROSTATE CANCER METASTATIC
     Dosage: SINGLE
     Route: 042
     Dates: start: 20121119, end: 20121119
  2. RAPAFLO (SILODOSIN) [Suspect]
     Dates: start: 201212
  3. ELIGARD (LEUPRORELIN ACETATE) [Concomitant]

REACTIONS (2)
  - Urticaria [None]
  - Fatigue [None]
